FAERS Safety Report 9460932 (Version 1)
Quarter: 2013Q3

REPORT INFORMATION
  Report Type: Spontaneous
  Country: DE (occurrence: DE)
  Receive Date: 20130816
  Receipt Date: 20130816
  Transmission Date: 20140515
  Serious: Yes (Other)
  Sender: FDA-Public Use
  Company Number: DE-009507513-1308DEU004681

PATIENT
  Age: 32 Year
  Sex: Female
  Weight: 69 kg

DRUGS (4)
  1. LORATADINE [Suspect]
     Indication: URTICARIA
     Dosage: 10 MG, QD (6-15 GESTATIONAL WEEK)
     Route: 048
  2. TELFAST [Concomitant]
     Indication: URTICARIA
     Dosage: 168 MG, QD UNTIL HER 6TH GESTATIONAL WEEK
     Route: 048
  3. ALLERGOSPASMIN SPRAY [Concomitant]
     Indication: ASTHMA
     Dosage: 0-15 GESTATIONAL WEEK
     Route: 055
  4. FOLSAURE [Concomitant]
     Indication: PROPHYLAXIS OF NEURAL TUBE DEFECT
     Dosage: 0.4 MG, QD (6- 15 GESTATIONAL WEEK)
     Route: 048

REACTIONS (1)
  - Abortion spontaneous [Recovered/Resolved]
